FAERS Safety Report 15214857 (Version 2)
Quarter: 2018Q3

REPORT INFORMATION
  Report Type: Spontaneous
  Country: GR (occurrence: GR)
  Receive Date: 20180730
  Receipt Date: 20180806
  Transmission Date: 20181010
  Serious: Yes (Hospitalization)
  Sender: FDA-Public Use
  Company Number: GR-PFIZER INC-2018300483

PATIENT
  Sex: Female

DRUGS (1)
  1. METHOTREXATE SODIUM. [Suspect]
     Active Substance: METHOTREXATE SODIUM
     Indication: ECTOPIC PREGNANCY
     Dosage: UNK

REACTIONS (4)
  - Abdominal pain upper [Unknown]
  - Pelvic fluid collection [Unknown]
  - Product use in unapproved indication [Unknown]
  - Vaginal haemorrhage [Unknown]
